FAERS Safety Report 9137753 (Version 1)
Quarter: 2013Q1

REPORT INFORMATION
  Report Type: Spontaneous
  Country: US (occurrence: US)
  Receive Date: 20130304
  Receipt Date: 20130304
  Transmission Date: 20140127
  Serious: No
  Sender: FDA-Public Use
  Company Number: US-ENDO PHARMACEUTICALS INC.-PERC20110027

PATIENT
  Age: 37 Year
  Sex: Male

DRUGS (5)
  1. PERCOCET [Suspect]
     Indication: PAIN
     Dosage: 10/625 MG
     Route: 048
     Dates: start: 20110215, end: 201103
  2. LEXAPRO [Suspect]
     Indication: ANXIETY
     Route: 048
     Dates: start: 201101
  3. LORTAB [Concomitant]
     Indication: PAIN
     Dosage: UNK
     Route: 048
     Dates: start: 201005
  4. DEXTROAMPHETAMINE [Concomitant]
     Indication: PRODUCT USED FOR UNKNOWN INDICATION
     Dosage: UNK
  5. CLONAZEPAM [Concomitant]
     Indication: PRODUCT USED FOR UNKNOWN INDICATION
     Dosage: UNK

REACTIONS (2)
  - Drug interaction [Not Recovered/Not Resolved]
  - Panic attack [Not Recovered/Not Resolved]
